FAERS Safety Report 19641634 (Version 1)
Quarter: 2021Q3

REPORT INFORMATION
  Report Type: Report from Study
  Country: US (occurrence: US)
  Receive Date: 20210730
  Receipt Date: 20210730
  Transmission Date: 20211014
  Serious: Yes (Death, Hospitalization)
  Sender: FDA-Public Use
  Company Number: US-MYLANLABS-2021M1047096

PATIENT
  Age: 5 Decade
  Sex: Male

DRUGS (1)
  1. LAMOTRIGINE. [Suspect]
     Active Substance: LAMOTRIGINE
     Indication: BIPOLAR DISORDER
     Dosage: UNK
     Route: 065

REACTIONS (6)
  - Disseminated intravascular coagulation [Fatal]
  - Unresponsive to stimuli [Fatal]
  - Thrombosis [Fatal]
  - Multiple organ dysfunction syndrome [Fatal]
  - Blood creatinine increased [Unknown]
  - Stevens-Johnson syndrome [Fatal]
